FAERS Safety Report 25541867 (Version 2)
Quarter: 2025Q3

REPORT INFORMATION
  Report Type: Spontaneous
  Country: BR (occurrence: BR)
  Receive Date: 20250711
  Receipt Date: 20250714
  Transmission Date: 20251020
  Serious: Yes (Death)
  Sender: ABBVIE
  Company Number: BR-ABBVIE-6366374

PATIENT
  Sex: Female

DRUGS (1)
  1. VENETOCLAX [Suspect]
     Active Substance: VENETOCLAX
     Indication: Myeloid leukaemia
     Route: 048

REACTIONS (1)
  - Death [Fatal]
